FAERS Safety Report 4734924-2 (Version None)
Quarter: 2005Q3

REPORT INFORMATION
  Report Type: 
  Country: None (occurrence: None)
  Receive Date: 20050804
  Receipt Date: 20050726
  Transmission Date: 20060218
  Serious: Yes (Other)
  Sender: FDA-Public Use
  Company Number: 200516820GDDC

PATIENT
  Age: 46 Year
  Sex: Female

DRUGS (8)
  1. THEOPHYLLINE [Suspect]
     Indication: ASTHMA
     Dosage: DOSE: UNK
     Dates: start: 19950101
  2. ALENDRONATE SODIUM [Suspect]
     Indication: OSTEOPOROSIS
     Route: 048
     Dates: start: 20020901, end: 20021001
  3. ACTONEL [Suspect]
     Indication: OSTEOPOROSIS
     Dates: start: 20030101, end: 20031101
  4. FLIXOTIDE [Concomitant]
     Route: 055
  5. ATROVENT [Concomitant]
     Dosage: DOSE: UNK
     Route: 055
  6. PREDNISOLONE [Concomitant]
  7. SEREVENT [Concomitant]
     Route: 055
  8. VENTOLIN [Concomitant]
     Route: 055

REACTIONS (7)
  - CONVULSION [None]
  - DRUG INTERACTION [None]
  - DRUG TOXICITY [None]
  - HEADACHE [None]
  - MALAISE [None]
  - SPINAL OSTEOARTHRITIS [None]
  - VOMITING [None]
